FAERS Safety Report 8796283 (Version 2)
Quarter: 2012Q4

REPORT INFORMATION
  Report Type: 
  Country: US (occurrence: US)
  Receive Date: 20120919
  Receipt Date: 20121008
  Transmission Date: 20130627
  Serious: No
  Sender: FDA-Public Use
  Company Number: US-VERTEX PHARMACEUTICAL INC.-2012-021079

PATIENT
  Age: 40 None
  Sex: Female
  Weight: 60 kg

DRUGS (8)
  1. INCIVEK [Suspect]
     Indication: HEPATITIS C
     Dosage: `750 mg, tid
     Route: 048
     Dates: start: 20120901
  2. RIBAVIRIN [Suspect]
     Indication: HEPATITIS C
     Dosage: UNK, bid
     Route: 048
     Dates: start: 20120901
  3. PEGASYS [Suspect]
     Indication: HEPATITIS C
     Dosage: UNK
     Route: 058
     Dates: start: 20120901
  4. LAMICTAL [Concomitant]
     Indication: BIPOLAR DISORDER
     Dosage: UNK, qd
     Route: 048
  5. OMEPRAZOLE [Concomitant]
     Indication: GASTROOESOPHAGEAL REFLUX DISEASE
     Dosage: UNK, bid
     Route: 048
  6. PRISTIQ [Concomitant]
     Indication: DEPRESSION
     Dosage: UNK, qd
     Route: 048
  7. PERCOCET                           /00446701/ [Concomitant]
     Indication: BACK PAIN
     Dosage: UNK, prn
     Route: 048
  8. TYLENOL [Suspect]
     Indication: INFLUENZA LIKE ILLNESS
     Dosage: 500 mg, prn

REACTIONS (5)
  - Fatigue [Not Recovered/Not Resolved]
  - Rash papular [Not Recovered/Not Resolved]
  - Urticaria [Not Recovered/Not Resolved]
  - Vomiting [Not Recovered/Not Resolved]
  - Nausea [Not Recovered/Not Resolved]
